FAERS Safety Report 14629967 (Version 2)
Quarter: 2018Q2

REPORT INFORMATION
  Report Type: Spontaneous
  Country: JP (occurrence: JP)
  Receive Date: 20180313
  Receipt Date: 20180403
  Transmission Date: 20180711
  Serious: Yes (Hospitalization, Other)
  Sender: FDA-Public Use
  Company Number: JP-B.I. PHARMACEUTICALS,INC./RIDGEFIELD-2018-NB-001160

PATIENT
  Age: 88 Year
  Sex: Female

DRUGS (2)
  1. JARDIANCE [Suspect]
     Active Substance: EMPAGLIFLOZIN
     Indication: TYPE 2 DIABETES MELLITUS
     Route: 048
  2. SITAGLIPTIN PHOSPHATE [Concomitant]
     Active Substance: SITAGLIPTIN PHOSPHATE
     Indication: TYPE 2 DIABETES MELLITUS
     Route: 048

REACTIONS (7)
  - Hyperglycaemic hyperosmolar nonketotic syndrome [Unknown]
  - Dyspnoea [Unknown]
  - Haematuria [Recovered/Resolved]
  - Altered state of consciousness [Recovered/Resolved]
  - Haematoma [Recovered/Resolved]
  - Nausea [Unknown]
  - Shock [Unknown]
